FAERS Safety Report 5825670-2 (Version None)
Quarter: 2008Q3

REPORT INFORMATION
  Report Type: 
  Country: None (occurrence: None)
  Receive Date: 20080729
  Receipt Date: 20080717
  Transmission Date: 20090109
  Serious: Yes (Death, Hospitalization, Other)
  Sender: FDA-Public Use
  Company Number: US-ROCHE-577146

PATIENT
  Age: 46 Year
  Sex: Male

DRUGS (19)
  1. ENFUVIRTIDE [Suspect]
     Indication: HIV INFECTION
     Route: 058
     Dates: start: 20030701, end: 20030901
  2. SAQUINAVIR FORMULATION UNKNOWN [Suspect]
     Indication: HIV INFECTION
     Route: 065
     Dates: start: 20030701, end: 20030901
  3. SAQUINAVIR FORMULATION UNKNOWN [Suspect]
     Route: 065
  4. ATAZANAVIR/RITONAVIR [Suspect]
     Indication: HIV INFECTION
     Route: 065
     Dates: start: 20030701, end: 20030901
  5. ATAZANAVIR/RITONAVIR [Suspect]
     Route: 065
  6. EMTRICITABINE [Suspect]
     Indication: HIV INFECTION
     Route: 065
     Dates: start: 20030701, end: 20030901
  7. EMTRICITABINE [Suspect]
     Route: 065
  8. DIDANOSINE [Suspect]
     Indication: HIV INFECTION
     Route: 065
     Dates: start: 20030701, end: 20030901
  9. DIDANOSINE [Suspect]
     Route: 065
  10. TENOFOVIR [Suspect]
     Indication: HIV INFECTION
     Route: 065
     Dates: start: 20030701, end: 20030901
  11. TENOFOVIR [Suspect]
     Route: 065
  12. DAPSONE [Concomitant]
     Indication: OPPORTUNISTIC INFECTION PROPHYLAXIS
  13. AZITHROMYCIN [Concomitant]
     Indication: OPPORTUNISTIC INFECTION PROPHYLAXIS
  14. VANCOMYCIN HCL [Concomitant]
  15. CEFEPIME [Concomitant]
  16. RIFAMPIN [Concomitant]
  17. LINEZOLID [Concomitant]
  18. NAFCILLIN SODIUM [Concomitant]
  19. CLINDAMYCIN [Concomitant]

REACTIONS (3)
  - PNEUMONIA STAPHYLOCOCCAL [None]
  - STAPHYLOCOCCAL BACTERAEMIA [None]
  - STAPHYLOCOCCAL INFECTION [None]
